FAERS Safety Report 8776993 (Version 2)
Quarter: 2013Q1

REPORT INFORMATION
  Report Type: Spontaneous
  Country: US (occurrence: US)
  Receive Date: 20120911
  Receipt Date: 20130212
  Transmission Date: 20140127
  Serious: Yes (Life-Threatening, Hospitalization)
  Sender: FDA-Public Use
  Company Number: US-BAYER-2012-093943

PATIENT
  Age: 44 Year
  Sex: Female

DRUGS (5)
  1. YASMIN [Suspect]
     Dosage: UNK
     Dates: start: 200410, end: 20050407
  2. YAZ [Suspect]
  3. OCELLA [Suspect]
  4. ALLEGRA [Concomitant]
     Dosage: 60 MG, DAILY, AS NEEDED
     Route: 048
  5. TYLENOL #3 [Concomitant]
     Dosage: ONE TO TWO EVERY 6 HOURS P.R.N.

REACTIONS (7)
  - Deep vein thrombosis [None]
  - Pain [None]
  - Injury [None]
  - Venous insufficiency [None]
  - Local swelling [None]
  - Pain in extremity [None]
  - Pain [None]
